FAERS Safety Report 4279217-5 (Version None)
Quarter: 2004Q1

REPORT INFORMATION
  Report Type: 
  Country: None (occurrence: None)
  Receive Date: 20040127
  Receipt Date: 20040116
  Transmission Date: 20041129
  Serious: Yes (Hospitalization)
  Sender: FDA-Public Use
  Company Number: DE-BRISTOL-MYERS SQUIBB COMPANY-12480935

PATIENT
  Age: 79 Year
  Weight: 69 kg

DRUGS (2)
  1. TAXOL [Suspect]
     Indication: NON-SMALL CELL LUNG CANCER
     Dosage: 11 CYCLES BETWEEN 25-MAR-2003 TO 25-JUL-2003
     Route: 042
     Dates: start: 20030725, end: 20030725
  2. CARBOPLATIN [Suspect]
     Indication: NON-SMALL CELL LUNG CANCER
     Dosage: 11 CYCLES BETWEEN 25-MAR-2003 TO 25-JUL-2003
     Route: 042
     Dates: start: 20030725, end: 20030725

REACTIONS (1)
  - PNEUMONIA [None]
